FAERS Safety Report 12536878 (Version 3)
Quarter: 2016Q3

REPORT INFORMATION
  Report Type: Spontaneous
  Country: US (occurrence: US)
  Receive Date: 20160707
  Receipt Date: 20160912
  Transmission Date: 20161109
  Serious: Yes (Death, Hospitalization)
  Sender: FDA-Public Use
  Company Number: US-JNJFOC-20160627483

PATIENT
  Age: 53 Year
  Sex: Female

DRUGS (1)
  1. XARELTO [Suspect]
     Active Substance: RIVAROXABAN
     Indication: PULMONARY EMBOLISM
     Dosage: 15-20MG VARYING DOSES.
     Route: 048
     Dates: start: 20140607, end: 20150120

REACTIONS (2)
  - Internal haemorrhage [Fatal]
  - Haematuria [Unknown]

NARRATIVE: CASE EVENT DATE: 20140612
